FAERS Safety Report 15457170 (Version 1)
Quarter: 2018Q4

REPORT INFORMATION
  Report Type: Spontaneous
  Country: GB (occurrence: GB)
  Receive Date: 20181002
  Receipt Date: 20181002
  Transmission Date: 20190204
  Serious: Yes (Life-Threatening, Other)
  Sender: FDA-Public Use
  Company Number: GB-TAKEDA-2018TUS028625

PATIENT
  Sex: Female

DRUGS (1)
  1. ENTYVIO [Suspect]
     Active Substance: VEDOLIZUMAB
     Indication: INFLAMMATORY BOWEL DISEASE
     Dosage: UNK
     Route: 065

REACTIONS (7)
  - Bacterial infection [Unknown]
  - Skin lesion [Unknown]
  - Sepsis [Unknown]
  - Disease recurrence [Unknown]
  - Tuberculosis [Unknown]
  - Off label use [Unknown]
  - Pregnancy [Unknown]
